FAERS Safety Report 21734684 (Version 1)
Quarter: 2022Q4

REPORT INFORMATION
  Report Type: Spontaneous
  Country: US (occurrence: US)
  Receive Date: 20221215
  Receipt Date: 20221215
  Transmission Date: 20230112
  Serious: No
  Sender: FDA-Public Use
  Company Number: US-PFIZER INC-PV202200124107

PATIENT
  Age: 52 Year
  Sex: Male
  Weight: 106 kg

DRUGS (2)
  1. CIBINQO [Suspect]
     Active Substance: ABROCITINIB
     Dosage: UNK
  2. DUPIXENT [Suspect]
     Active Substance: DUPILUMAB
     Indication: Dermatitis atopic
     Dosage: 600 MG, 1X/DAY (LOADING DOSE OF 600 MG IX (ONCE) AND MAINTENANCE DOSE OF 300 MG QO W)
     Route: 058
     Dates: start: 202009

REACTIONS (1)
  - Drug hypersensitivity [Unknown]
